FAERS Safety Report 13545698 (Version 1)
Quarter: 2017Q2

REPORT INFORMATION
  Report Type: Report from Study
  Country: CA (occurrence: CA)
  Receive Date: 20170515
  Receipt Date: 20170515
  Transmission Date: 20170830
  Serious: Yes (Hospitalization, Other)
  Sender: FDA-Public Use
  Company Number: CA-BEH-2017080421

PATIENT
  Age: 64 Year
  Sex: Female

DRUGS (1)
  1. HIZENTRA [Suspect]
     Active Substance: HUMAN IMMUNOGLOBULIN G
     Indication: SECONDARY IMMUNODEFICIENCY
     Dosage: 8.0 G, QW
     Route: 058
     Dates: start: 20140530

REACTIONS (5)
  - Oxygen therapy [Unknown]
  - Ill-defined disorder [Unknown]
  - Memory impairment [Unknown]
  - Lung disorder [Unknown]
  - Pneumonia [Unknown]

NARRATIVE: CASE EVENT DATE: 201502
